FAERS Safety Report 6118312-2 (Version None)
Quarter: 2009Q1

REPORT INFORMATION
  Report Type: 
  Country: None (occurrence: None)
  Receive Date: 20090314
  Receipt Date: 20090212
  Transmission Date: 20090719
  Serious: No
  Sender: FDA-Public Use
  Company Number: US-ABBOTT-09P-163-0557431-00

PATIENT
  Sex: Female
  Weight: 58.566 kg

DRUGS (4)
  1. HUMIRA [Suspect]
     Indication: RHEUMATOID ARTHRITIS
     Route: 058
     Dates: start: 20090128
  2. CHOLESTYRAMINE [Concomitant]
     Indication: CONSTIPATION PROPHYLAXIS
     Dates: start: 20080901
  3. DYAZIDE [Concomitant]
     Indication: HYPERTENSION
  4. SOMA [Concomitant]
     Indication: RHEUMATOID ARTHRITIS

REACTIONS (1)
  - PAIN IN EXTREMITY [None]
